FAERS Safety Report 11630842 (Version 7)
Quarter: 2016Q2

REPORT INFORMATION
  Report Type: Spontaneous
  Country: US (occurrence: US)
  Receive Date: 20151014
  Receipt Date: 20160520
  Transmission Date: 20160815
  Serious: Yes (Life-Threatening, Hospitalization, Other)
  Sender: FDA-Public Use
  Company Number: US-009507513-1510USA003426

PATIENT
  Age: 23 Year
  Sex: Male

DRUGS (4)
  1. CUBICIN [Suspect]
     Active Substance: DAPTOMYCIN
     Indication: DEVICE RELATED INFECTION
     Dosage: 500 MG, QD
     Route: 042
     Dates: start: 20150715, end: 20150817
  2. CUBICIN [Suspect]
     Active Substance: DAPTOMYCIN
     Dosage: 500 MG, QD
     Route: 042
     Dates: start: 20151126, end: 20151229
  3. CUBICIN [Suspect]
     Active Substance: DAPTOMYCIN
     Dosage: 500 MG, QD
     Route: 042
     Dates: start: 20160227, end: 20160405
  4. CUBICIN [Suspect]
     Active Substance: DAPTOMYCIN
     Indication: WOUND INFECTION STAPHYLOCOCCAL
     Dosage: 500 MG, QD
     Route: 042
     Dates: start: 20150704, end: 20150711

REACTIONS (3)
  - Wound infection staphylococcal [Unknown]
  - Wound infection staphylococcal [Unknown]
  - Wound infection staphylococcal [Recovered/Resolved]

NARRATIVE: CASE EVENT DATE: 201507
